FAERS Safety Report 21614389 (Version 1)
Quarter: 2022Q4

REPORT INFORMATION
  Report Type: Spontaneous
  Country: US (occurrence: None)
  Receive Date: 20221117
  Receipt Date: 20221117
  Transmission Date: 20230112
  Serious: Yes (Other)
  Sender: FDA-Public Use
  Company Number: None

PATIENT
  Age: 81 Year
  Sex: Male
  Weight: 45.4 kg

DRUGS (1)
  1. ATORVASTATIN [Suspect]
     Active Substance: ATORVASTATIN
     Dosage: FREQUENCY : DAILY;?
     Route: 048
     Dates: end: 20221109

REACTIONS (8)
  - Enterococcal infection [None]
  - Bacterial sepsis [None]
  - Septic shock [None]
  - Mitral valve disease [None]
  - Cardiac valve vegetation [None]
  - Endocarditis [None]
  - Drug-induced liver injury [None]
  - Myopathy [None]

NARRATIVE: CASE EVENT DATE: 20221109
